FAERS Safety Report 16064053 (Version 1)
Quarter: 2019Q1

REPORT INFORMATION
  Report Type: Spontaneous
  Country: US (occurrence: US)
  Receive Date: 20190312
  Receipt Date: 20190312
  Transmission Date: 20190418
  Serious: Yes (Other)
  Sender: FDA-Public Use
  Company Number: PHHY2019US050850

PATIENT
  Age: 11 Year
  Sex: Female

DRUGS (1)
  1. PAZOPANIB [Suspect]
     Active Substance: PAZOPANIB
     Indication: ALVEOLAR RHABDOMYOSARCOMA
     Dosage: UNK
     Route: 065

REACTIONS (1)
  - Bone development abnormal [Recovering/Resolving]
